FAERS Safety Report 24665249 (Version 1)
Quarter: 2024Q4

REPORT INFORMATION
  Report Type: Spontaneous
  Country: CN (occurrence: CN)
  Receive Date: 20241126
  Receipt Date: 20241126
  Transmission Date: 20250115
  Serious: Yes (Death, Life-Threatening, Hospitalization)
  Sender: ACCORD
  Company Number: CN-MLMSERVICE-20241107-PI252582-00101-1

PATIENT
  Age: 34 Year
  Sex: Male

DRUGS (2)
  1. CISPLATIN [Suspect]
     Active Substance: CISPLATIN
     Indication: Head and neck cancer
     Dosage: CISPLATIN 40 MG D1-3
  2. DOCETAXEL [Suspect]
     Active Substance: DOCETAXEL
     Indication: Head and neck cancer
     Dosage: DOCETAXEL 120 MG D1

REACTIONS (3)
  - Liver injury [Fatal]
  - Myelosuppression [Fatal]
  - Pneumonia [Fatal]
